FAERS Safety Report 4907019-2 (Version None)
Quarter: 2006Q1

REPORT INFORMATION
  Report Type: 
  Country: None (occurrence: None)
  Receive Date: 20060207
  Receipt Date: 20060124
  Transmission Date: 20060701
  Serious: Yes (Death)
  Sender: FDA-Public Use
  Company Number: US200601004061

PATIENT
  Age: 31 Year
  Sex: Female

DRUGS (1)
  1. ZYPREXA [Suspect]
     Dates: start: 19960101, end: 19990101

REACTIONS (2)
  - CARDIO-RESPIRATORY ARREST [None]
  - DIABETES MELLITUS NON-INSULIN-DEPENDENT [None]
